FAERS Safety Report 13840278 (Version 3)
Quarter: 2017Q4

REPORT INFORMATION
  Report Type: Spontaneous
  Country: IT (occurrence: IT)
  Receive Date: 20170807
  Receipt Date: 20171113
  Transmission Date: 20180320
  Serious: Yes (Life-Threatening, Other)
  Sender: FDA-Public Use
  Company Number: IT-MYLANLABS-2017M1046998

PATIENT
  Age: 77 Year
  Sex: Female
  Weight: 100 kg

DRUGS (3)
  1. LASIX [Concomitant]
     Active Substance: FUROSEMIDE
     Indication: PRODUCT USED FOR UNKNOWN INDICATION
     Dosage: 1 DF, UNK
  2. CANDESARTAN HCTZ [Concomitant]
     Active Substance: CANDESARTAN CILEXETIL\HYDROCHLOROTHIAZIDE
     Indication: PRODUCT USED FOR UNKNOWN INDICATION
     Dosage: 1 DF, UNK
  3. METFORMIN [Suspect]
     Active Substance: METFORMIN HYDROCHLORIDE
     Indication: DIABETES MELLITUS
     Dosage: 2500 MG DAILY
     Route: 048
     Dates: start: 20170301, end: 20170617

REACTIONS (4)
  - Lactic acidosis [Recovered/Resolved with Sequelae]
  - Overdose [Unknown]
  - Oliguria [Recovered/Resolved with Sequelae]
  - Shock [Recovered/Resolved with Sequelae]

NARRATIVE: CASE EVENT DATE: 20170617
